FAERS Safety Report 6906068-2 (Version None)
Quarter: 2010Q3

REPORT INFORMATION
  Report Type: 
  Country: None (occurrence: None)
  Receive Date: 20100804
  Receipt Date: 20100729
  Transmission Date: 20110219
  Serious: Yes (Hospitalization)
  Sender: FDA-Public Use
  Company Number: ES-WYE-G06476210

PATIENT
  Age: 60 Year
  Sex: Male

DRUGS (1)
  1. TYGACIL [Suspect]
     Indication: DIABETIC FOOT INFECTION
     Dosage: UNKNOWN
     Dates: start: 20090320, end: 20090325

REACTIONS (1)
  - DRUG RESISTANCE [None]
